FAERS Safety Report 7083873-6 (Version None)
Quarter: 2010Q4

REPORT INFORMATION
  Report Type: 
  Country: None (occurrence: None)
  Receive Date: 20101025
  Receipt Date: 20101007
  Transmission Date: 20110411
  Serious: Yes (Other)
  Sender: FDA-Public Use
  Company Number: DSA_03057_2009

PATIENT
  Age: 48 Year
  Sex: Female
  Weight: 51 kg

DRUGS (3)
  1. VANIQA [Suspect]
     Indication: HIRSUTISM
     Dosage: 1 DF BID, TOPICAL) ; (1 DF QD, DF TOPICAL)
     Route: 061
     Dates: start: 20080905, end: 20081101
  2. VANIQA [Suspect]
     Indication: HIRSUTISM
     Dosage: 1 DF BID, TOPICAL) ; (1 DF QD, DF TOPICAL)
     Route: 061
     Dates: start: 20081101, end: 20081101
  3. TRIPTANS [Concomitant]

REACTIONS (4)
  - ACNE CYSTIC [None]
  - FOLLICULITIS [None]
  - NO THERAPEUTIC RESPONSE [None]
  - PURULENCE [None]
